FAERS Safety Report 19694348 (Version 2)
Quarter: 2021Q3

REPORT INFORMATION
  Report Type: Spontaneous
  Country: US (occurrence: US)
  Receive Date: 20210813
  Receipt Date: 20210825
  Transmission Date: 20211014
  Serious: Yes (Other)
  Sender: FDA-Public Use
  Company Number: US-AUROBINDO-AUR-APL-2021-034028

PATIENT
  Age: 98 Year
  Sex: Female

DRUGS (9)
  1. BUPIVACAINE HYDROCHLORIDE 0.25% (2.5 MG/ML) [Suspect]
     Active Substance: BUPIVACAINE HYDROCHLORIDE
     Indication: CANCER PAIN
     Dosage: UNK
     Route: 065
  2. METHYLPREDNISOLONE. [Suspect]
     Active Substance: METHYLPREDNISOLONE
     Indication: CANCER PAIN
     Dosage: 40 MILLIGRAM
     Route: 065
  3. TRAMADOL. [Suspect]
     Active Substance: TRAMADOL
     Indication: PAIN
     Dosage: UNK
     Route: 065
  4. LIDOCAINE. [Suspect]
     Active Substance: LIDOCAINE
     Indication: PAIN
     Dosage: UNK
     Route: 065
  5. HYDROCODONE BITARTRATE AND ACETAMINOPHEN [Suspect]
     Active Substance: ACETAMINOPHEN\HYDROCODONE BITARTRATE
     Indication: CANCER PAIN
     Dosage: UNK
     Route: 065
  6. OXYCODONE [Suspect]
     Active Substance: OXYCODONE
     Indication: CANCER PAIN
     Dosage: 5 MILLIGRAM (PO Q 4 HOURS WAS ADDED)
     Route: 048
  7. LIPODERM [Suspect]
     Active Substance: BACLOFEN\CYCLOBENZAPRINE\DICLOFENAC\GABAPENTIN\TETRACAINE
     Indication: PRODUCT USED FOR UNKNOWN INDICATION
     Dosage: UNK (CONTAINING KETAMINE 10%, CLONIDINE 0.2?MG/ML, AND GABAPENTIN 6?MG/ML)
     Route: 065
  8. BENZOCAINE. [Suspect]
     Active Substance: BENZOCAINE
     Indication: CANCER PAIN
     Dosage: UNK
     Route: 065
  9. MORPHINE [Suspect]
     Active Substance: MORPHINE
     Indication: CANCER PAIN
     Dosage: 7.5 MILLIGRAM (BY MOUTH) EVERY 4 HOURS AS NEEDED)
     Route: 065

REACTIONS (7)
  - Drug intolerance [Unknown]
  - Suicide attempt [Unknown]
  - Hallucination [Unknown]
  - Drug ineffective [Unknown]
  - Disorientation [Unknown]
  - Overdose [Unknown]
  - Dyspepsia [Unknown]
